FAERS Safety Report 9468143 (Version 3)
Quarter: 2013Q4

REPORT INFORMATION
  Report Type: Spontaneous
  Country: US (occurrence: US)
  Receive Date: 20130821
  Receipt Date: 20131126
  Transmission Date: 20140711
  Serious: Yes (Other)
  Sender: FDA-Public Use
  Company Number: US-NAPPMUNDI-USA-2013-0105466

PATIENT
  Sex: Male

DRUGS (6)
  1. OXYCONTIN (NDA 22-272) [Suspect]
     Indication: PAIN
     Dosage: 10 MG, UNK
     Route: 048
     Dates: start: 1999
  2. OXYCONTIN (NDA 22-272) [Suspect]
     Indication: BACK PAIN
     Dosage: 40 MG, TID PRN
     Route: 048
  3. OXYCONTIN (NDA 22-272) [Suspect]
     Dosage: 60 MG, TID PRN (3-4 TABS)
     Route: 048
  4. OXYCODONE HCL CR TABLETS (SIMILAR TO NDA 22-272) [Suspect]
     Indication: PAIN
     Dosage: 5 MG, UNK
     Route: 048
     Dates: start: 1999
  5. DEMEROL [Concomitant]
     Indication: PRODUCT USED FOR UNKNOWN INDICATION
     Dosage: UNKNOWN
  6. KLONOPIN [Concomitant]
     Indication: PRODUCT USED FOR UNKNOWN INDICATION
     Dosage: 1 MG, QID PRN

REACTIONS (4)
  - Surgery [Unknown]
  - Akinesia [Unknown]
  - Spinal fracture [Unknown]
  - Road traffic accident [Unknown]
